FAERS Safety Report 16373714 (Version 7)
Quarter: 2021Q2

REPORT INFORMATION
  Report Type: Spontaneous
  Country: US (occurrence: US)
  Receive Date: 20190530
  Receipt Date: 20210512
  Transmission Date: 20210716
  Serious: No
  Sender: FDA-Public Use
  Company Number: US-SA-2019SA147667

PATIENT
  Age: 58 Year
  Sex: Female

DRUGS (6)
  1. MUPIROCIN. [Concomitant]
     Active Substance: MUPIROCIN
  2. AUBAGIO [Suspect]
     Active Substance: TERIFLUNOMIDE
     Dosage: 14 MG, QD
     Route: 048
     Dates: start: 20190416
  3. AUBAGIO [Suspect]
     Active Substance: TERIFLUNOMIDE
     Indication: MULTIPLE SCLEROSIS
     Dosage: 14 MG, QD
     Route: 048
     Dates: start: 20190413
  4. AUBAGIO [Suspect]
     Active Substance: TERIFLUNOMIDE
     Dosage: 14 MG, QD
     Route: 048
     Dates: start: 202007
  5. CEPHALEXIN [CEFALEXIN] [Concomitant]
     Active Substance: CEPHALEXIN
     Dosage: 500 MG, QID
  6. DEXAMETHASONE. [Concomitant]
     Active Substance: DEXAMETHASONE
     Dosage: 2 MG

REACTIONS (13)
  - Pain [Unknown]
  - Dry skin [Unknown]
  - Pain in extremity [Unknown]
  - Rash [Unknown]
  - Skin fissures [Unknown]
  - Alopecia [Recovered/Resolved]
  - Diarrhoea [Unknown]
  - Restless legs syndrome [Unknown]
  - Nausea [Unknown]
  - Dermatitis infected [Unknown]
  - Hypoaesthesia [Unknown]
  - Sleep disorder [Unknown]
  - Paraesthesia [Unknown]

NARRATIVE: CASE EVENT DATE: 2019
